FAERS Safety Report 22242281 (Version 1)
Quarter: 2023Q2

REPORT INFORMATION
  Report Type: Spontaneous
  Country: US (occurrence: None)
  Receive Date: 20230422
  Receipt Date: 20230422
  Transmission Date: 20230722
  Serious: No
  Sender: FDA-Public Use
  Company Number: 2023A082742

PATIENT

DRUGS (1)
  1. IMJUDO [Suspect]
     Active Substance: TREMELIMUMAB-ACTL
     Route: 042

REACTIONS (1)
  - Muscle spasms [Unknown]
